FAERS Safety Report 7770230-X (Version None)
Quarter: 2011Q3

REPORT INFORMATION
  Report Type: 
  Country: None (occurrence: None)
  Receive Date: 20110922
  Receipt Date: 20110615
  Transmission Date: 20111222
  Serious: No
  Sender: FDA-Public Use
  Company Number: US-ASTRAZENECA-2011SE36493

PATIENT
  Age: 58 Year
  Sex: Male
  Weight: 72.6 kg

DRUGS (1)
  1. SEROQUEL [Suspect]
     Indication: SLEEP DISORDER
     Route: 048
     Dates: start: 20110611

REACTIONS (4)
  - DRUG DOSE OMISSION [None]
  - HYPERTENSION [None]
  - INSOMNIA [None]
  - OFF LABEL USE [None]
